FAERS Safety Report 9687100 (Version 2)
Quarter: 2013Q4

REPORT INFORMATION
  Report Type: Spontaneous
  Country: US (occurrence: US)
  Receive Date: 20131113
  Receipt Date: 20131113
  Transmission Date: 20140711
  Serious: Yes (Death, Other)
  Sender: FDA-Public Use
  Company Number: US-TAKEDA-2013TUS001329

PATIENT
  Sex: 0

DRUGS (5)
  1. ACTOS [Suspect]
     Indication: TYPE 2 DIABETES MELLITUS
     Dosage: 30 MG, UNK
     Dates: start: 2004, end: 2006
  2. FORTAMET [Concomitant]
  3. GLYSET                             /01249401/ [Concomitant]
  4. LANTUS [Concomitant]
  5. GLUCOTROL [Concomitant]
     Dosage: 10 MG, UNK
     Dates: start: 2004, end: 2006

REACTIONS (1)
  - Bladder cancer [Fatal]
